FAERS Safety Report 4927085-8 (Version None)
Quarter: 2006Q1

REPORT INFORMATION
  Report Type: 
  Country: None (occurrence: None)
  Receive Date: 20060228
  Receipt Date: 20051019
  Transmission Date: 20060701
  Serious: Yes (Hospitalization)
  Sender: FDA-Public Use
  Company Number: US-GLAXOSMITHKLINE-A0578973A

PATIENT
  Age: 41 Year
  Sex: Female
  Weight: 75.5 kg

DRUGS (4)
  1. LAMICTAL [Suspect]
     Indication: BIPOLAR I DISORDER
     Dosage: 125MG PER DAY
     Route: 048
     Dates: start: 20050624, end: 20051010
  2. XANAX [Suspect]
     Indication: DRUG USE FOR UNKNOWN INDICATION
     Dosage: 1MG THREE TIMES PER DAY
     Route: 048
     Dates: start: 20050927
  3. ESKALITH CR [Concomitant]
     Route: 048
  4. SEROQUEL [Concomitant]
     Dosage: 50MG THREE TIMES PER DAY
     Route: 048

REACTIONS (1)
  - PANCREATITIS ACUTE [None]
